FAERS Safety Report 7561256-X (Version None)
Quarter: 2011Q2

REPORT INFORMATION
  Report Type: 
  Country: None (occurrence: None)
  Receive Date: 20110621
  Receipt Date: 20110613
  Transmission Date: 20111010
  Serious: Yes (Hospitalization)
  Sender: FDA-Public Use
  Company Number: US-CELGENEUS-163-20785-11051347

PATIENT
  Sex: Female

DRUGS (6)
  1. SPIRONOLACTONE [Concomitant]
     Route: 065
  2. DEXAMETHASONE [Concomitant]
     Route: 065
  3. THALOMID [Suspect]
     Indication: MULTIPLE MYELOMA
     Dosage: 200 MILLIGRAM
     Route: 048
     Dates: start: 20100427, end: 20110426
  4. VICODIN [Concomitant]
     Dosage: 10/325MG
     Route: 065
  5. CELEXA [Concomitant]
     Route: 065
  6. LOSARTAN POTASSIUM [Concomitant]
     Route: 065

REACTIONS (2)
  - CARBON DIOXIDE INCREASED [None]
  - SOMNOLENCE [None]
